FAERS Safety Report 9655864 (Version 4)
Quarter: 2014Q1

REPORT INFORMATION
  Report Type: Report from Study
  Country: US (occurrence: US)
  Receive Date: 20131030
  Receipt Date: 20140225
  Transmission Date: 20141002
  Serious: Yes (Hospitalization)
  Sender: FDA-Public Use
  Company Number: US-ROCHE-1296743

PATIENT
  Sex: Male

DRUGS (10)
  1. FORMOTEROL FUMARATE/MOMETASONE FUROATE [Suspect]
     Indication: PRODUCT USED FOR UNKNOWN INDICATION
     Route: 065
  2. PREDNISONE [Concomitant]
     Route: 065
  3. PREDNISONE [Concomitant]
     Route: 065
  4. PROAIR (UNITED STATES) [Concomitant]
     Dosage: 108MCG/ACT 2 PUFFS AS NEEDED INHALATION EVERY 4 HR
     Route: 065
  5. ZYRTEC [Concomitant]
     Dosage: 1 TABLET ORALLY ONCE A DAY
     Route: 048
  6. COUMADIN [Concomitant]
     Dosage: 1 TABLET ORALLY ONCE A DAY
     Route: 048
  7. DEXILANT [Concomitant]
     Dosage: 1 CAPSULE ORALLY ONCE A DAY
     Route: 048
  8. ASTEPRO [Concomitant]
     Dosage: 205.5 MCG/SPRAY,  2 SPRAYS IN EACH NOSTRIL PRN
     Route: 045
  9. FLONASE [Concomitant]
     Dosage: 50MCG/ACT SUSPENSION, 2 SPRAYS NASALLY PRN
     Route: 045
  10. MONTELUKAST SODIUM [Concomitant]
     Dosage: 1 TABLET IN THE EVENING ORALLY ONCE A DAY
     Route: 048

REACTIONS (6)
  - Pulmonary embolism [Unknown]
  - Thrombosis [Unknown]
  - Vomiting [Unknown]
  - Cough [Unknown]
  - Malaise [Unknown]
  - Chest discomfort [Unknown]
